FAERS Safety Report 19820156 (Version 1)
Quarter: 2021Q3

REPORT INFORMATION
  Report Type: Spontaneous
  Country: JP (occurrence: JP)
  Receive Date: 20210913
  Receipt Date: 20210913
  Transmission Date: 20211014
  Serious: Yes (Other)
  Sender: FDA-Public Use
  Company Number: JP-CHUGAI-2021014325

PATIENT
  Age: 82 Year
  Sex: Female

DRUGS (4)
  1. TRICHLORMETHIAZIDE [Concomitant]
     Active Substance: TRICHLORMETHIAZIDE
     Indication: OSTEOPOROSIS
     Dosage: (2 MG,1 D)
     Route: 048
  2. CALCIUM [Concomitant]
     Active Substance: CALCIUM
     Indication: OSTEOPOROSIS
     Dosage: 1000 MG, 1 IN 8 HR
     Route: 048
  3. ROCALTROL [Suspect]
     Active Substance: CALCITRIOL
     Indication: OSTEOPOROSIS
     Dosage: 0.5 MCG,1 IN 1 D
     Route: 048
  4. ROCALTROL [Suspect]
     Active Substance: CALCITRIOL
     Dosage: 0.25 MCG
     Route: 048

REACTIONS (3)
  - Renal impairment [Recovering/Resolving]
  - Hypovolaemia [Recovering/Resolving]
  - Hypercalcaemia [Recovering/Resolving]
